FAERS Safety Report 5138512-8 (Version None)
Quarter: 2006Q4

REPORT INFORMATION
  Report Type: 
  Country: None (occurrence: None)
  Receive Date: 20061030
  Receipt Date: 20060307
  Transmission Date: 20070319
  Serious: No
  Sender: FDA-Public Use
  Company Number: US-GLAXOSMITHKLINE-A0596496A

PATIENT
  Age: 57 Year
  Sex: Female

DRUGS (1)
  1. ADVAIR HFA [Suspect]
     Indication: RESPIRATORY TRACT INFECTION VIRAL
     Dosage: 1PUFF TWICE PER DAY
     Route: 055
     Dates: start: 20060207, end: 20060208

REACTIONS (4)
  - FORMICATION [None]
  - HYPERHIDROSIS [None]
  - INSOMNIA [None]
  - PALPITATIONS [None]
